FAERS Safety Report 4894671-3 (Version None)
Quarter: 2006Q1

REPORT INFORMATION
  Report Type: 
  Country: None (occurrence: None)
  Receive Date: 20060127
  Receipt Date: 20051226
  Transmission Date: 20060701
  Serious: Yes (Other)
  Sender: FDA-Public Use
  Company Number: JP-MERCK-0512USA03840

PATIENT
  Age: 59 Year
  Sex: Male
  Weight: 51 kg

DRUGS (3)
  1. PRIMAXIN [Suspect]
     Indication: PNEUMONIA
     Route: 042
     Dates: start: 20051214, end: 20051223
  2. MINOCYCLINE HYDROCHLORIDE [Concomitant]
     Indication: PNEUMONIA
     Route: 065
     Dates: start: 20051213, end: 20051223
  3. FLUMARIN [Concomitant]
     Indication: PNEUMONIA
     Route: 042
     Dates: start: 20051208, end: 20051212

REACTIONS (3)
  - DIZZINESS [None]
  - DYSKINESIA [None]
  - NAUSEA [None]
